FAERS Safety Report 20396187 (Version 1)
Quarter: 2022Q1

REPORT INFORMATION
  Report Type: Spontaneous
  Country: US (occurrence: US)
  Receive Date: 20220130
  Receipt Date: 20220130
  Transmission Date: 20220423
  Serious: No
  Sender: FDA-Public Use
  Company Number: US-AMGEN-USASP2022011969

PATIENT
  Sex: Female

DRUGS (1)
  1. MVASI [Suspect]
     Active Substance: BEVACIZUMAB-AWWB
     Indication: Ovarian cancer
     Dosage: 350 MILLIGRAM
     Route: 065

REACTIONS (3)
  - Haemoglobin abnormal [Unknown]
  - Neutrophil count abnormal [Unknown]
  - Off label use [Unknown]
